FAERS Safety Report 6862332-7 (Version None)
Quarter: 2010Q3

REPORT INFORMATION
  Report Type: 
  Country: None (occurrence: None)
  Receive Date: 20100716
  Receipt Date: 20100701
  Transmission Date: 20110219
  Serious: Yes (Other)
  Sender: FDA-Public Use
  Company Number: AUR-APL-2010-01701

PATIENT
  Age: 15 Year
  Sex: Female

DRUGS (12)
  1. CETIRIZINE HCL [Suspect]
     Indication: SEASONAL ALLERGY
     Dosage: 10MG, DAILY
     Dates: start: 20090917, end: 20091013
  2. PAROXETINE HCL [Suspect]
     Dosage: 2ND TRIMESTER
  3. DEPO-PROVERA [Suspect]
     Indication: CONTRACEPTION
     Dosage: IM
     Route: 030
     Dates: start: 20090911
  4. DEPO-PROVERA [Suspect]
     Dosage: IM
     Route: 030
     Dates: start: 20090623
  5. DEPO-PROVERA [Suspect]
     Indication: CONTRACEPTION
     Dosage: IM
     Route: 030
     Dates: start: 20090623
  6. FLUXLOXACILLIN [Suspect]
     Indication: ACARODERMATITIS
     Dosage: 250MG, Q/D
     Dates: start: 20090710
  7. FUCIDIN H [Suspect]
     Indication: ACARODERMATITIS
     Dosage: BID
     Dates: start: 20090710
  8. MALATHION [Suspect]
     Indication: ACARODERMATITIS
     Dosage: TOPICAL
     Route: 061
     Dates: start: 20090806, end: 20090813
  9. MALATHION [Suspect]
     Indication: ACARODERMATITIS
     Dosage: TOPICAL
     Route: 061
     Dates: start: 20090823
  10. PERMETHRIN [Suspect]
     Indication: ACARODERMATITIS
     Dates: start: 20090917, end: 20090924
  11. TRIMETHOPRIM [Suspect]
     Indication: URINARY TRACT INFECTION
     Dosage: 200MG, BID
     Dates: start: 20090604
  12. CERVARIX VACCINE [Suspect]
     Indication: PROPHYLAXIS
     Dosage: 1DF, DAILY, IM
     Route: 030
     Dates: start: 20091008, end: 20091008

REACTIONS (3)
  - DRUG EXPOSURE DURING PREGNANCY [None]
  - PREGNANCY WITH INJECTABLE CONTRACEPTIVE [None]
  - VENTOUSE EXTRACTION [None]
